FAERS Safety Report 13865276 (Version 2)
Quarter: 2017Q3

REPORT INFORMATION
  Report Type: Spontaneous
  Country: IN (occurrence: IN)
  Receive Date: 20170814
  Receipt Date: 20170919
  Transmission Date: 20171127
  Serious: Yes (Death)
  Sender: FDA-Public Use
  Company Number: IN-GEHC-2017CSU002442

PATIENT

DRUGS (1)
  1. VISIPAQUE [Suspect]
     Active Substance: IODIXANOL
     Indication: PANCREATIC MASS
     Dosage: 85 ML, SINGLE
     Route: 042
     Dates: start: 20170802, end: 20170802

REACTIONS (5)
  - Metabolic acidosis [Fatal]
  - Atrial fibrillation [Fatal]
  - Heart rate increased [Fatal]
  - Chills [Fatal]
  - White blood cell count increased [Fatal]

NARRATIVE: CASE EVENT DATE: 20170802
